FAERS Safety Report 9619963 (Version 5)
Quarter: 2014Q1

REPORT INFORMATION
  Report Type: Spontaneous
  Country: US (occurrence: US)
  Receive Date: 20131014
  Receipt Date: 20140115
  Transmission Date: 20141002
  Serious: No
  Sender: FDA-Public Use
  Company Number: US-PFIZER INC-2013292133

PATIENT
  Age: 48 Year
  Sex: Female

DRUGS (9)
  1. ENBREL [Suspect]
     Dosage: UNK
  2. METHOTREXATE SODIUM [Suspect]
     Dosage: 2.5 MG, UNK
  3. HUMIRA [Suspect]
     Dosage: UNK
  4. OMEPRAZOLE [Concomitant]
     Dosage: 40 MG, UNK
  5. FOLIC ACID [Concomitant]
     Dosage: 1 MG, UNK
     Route: 048
  6. REMICADE [Concomitant]
     Dosage: 100 MG, UNK
  7. PREDNISON [Concomitant]
     Dosage: 5 MG, UNK
     Route: 048
  8. XELJANZ [Concomitant]
     Dosage: UNK
  9. CIMZIA [Concomitant]
     Dosage: UNK

REACTIONS (5)
  - Treatment failure [Unknown]
  - Pain [Unknown]
  - Joint stiffness [Unknown]
  - Joint swelling [Unknown]
  - Activities of daily living impaired [Unknown]
